FAERS Safety Report 11984638 (Version 2)
Quarter: 2016Q2

REPORT INFORMATION
  Report Type: Spontaneous
  Country: US (occurrence: US)
  Receive Date: 20160201
  Receipt Date: 20160422
  Transmission Date: 20160815
  Serious: Yes (Hospitalization)
  Sender: FDA-Public Use
  Company Number: US-BAYER-2016-017482

PATIENT
  Age: 22 Year
  Sex: Female
  Weight: 63 kg

DRUGS (1)
  1. MIRENA [Suspect]
     Active Substance: LEVONORGESTREL
     Indication: CONTRACEPTION
     Dosage: 20 MCG/24HR, CONT
     Route: 015
     Dates: start: 20110204, end: 20150424

REACTIONS (7)
  - Anxiety [None]
  - Embedded device [None]
  - Device dislocation [None]
  - Psychological trauma [None]
  - Injury [None]
  - Device difficult to use [None]
  - Device difficult to use [None]

NARRATIVE: CASE EVENT DATE: 20150303
